FAERS Safety Report 8256944-6 (Version None)
Quarter: 2012Q2

REPORT INFORMATION
  Report Type: 
  Country: None (occurrence: None)
  Receive Date: 20120403
  Receipt Date: 20120326
  Transmission Date: 20120825
  Serious: No
  Sender: FDA-Public Use
  Company Number: CA-JNJFOC-20120313784

PATIENT
  Sex: Male
  Weight: 86.4 kg

DRUGS (4)
  1. TAMSULOSIN HCL [Concomitant]
     Route: 065
  2. IMURAN [Concomitant]
     Route: 065
  3. REMICADE [Suspect]
     Indication: CROHN'S DISEASE
     Dosage: 400MG ALTERNATING WITH 500MG ONCE 4-6 WEEKS
     Route: 042
     Dates: start: 20060101
  4. WARFARIN SODIUM [Concomitant]
     Route: 065

REACTIONS (1)
  - HERPES ZOSTER [None]
